FAERS Safety Report 18620605 (Version 18)
Quarter: 2022Q4

REPORT INFORMATION
  Report Type: Report from Study
  Country: AT (occurrence: AT)
  Receive Date: 20201215
  Receipt Date: 20221215
  Transmission Date: 20230113
  Serious: Yes (Hospitalization, Other)
  Sender: FDA-Public Use
  Company Number: AT-ROCHE-2720022

PATIENT
  Age: 65 Year
  Sex: Female
  Weight: 89 kg

DRUGS (64)
  1. TRASTUZUMAB [Suspect]
     Active Substance: TRASTUZUMAB
     Indication: HER2 positive breast cancer
     Dosage: 712 MILLIGRAM, Q3W
     Route: 042
     Dates: end: 20170324
  2. TRASTUZUMAB [Suspect]
     Active Substance: TRASTUZUMAB
     Dosage: 534 MILLIGRAM, Q3W/14-APR-2017
     Route: 042
     Dates: end: 20170619
  3. TRASTUZUMAB [Suspect]
     Active Substance: TRASTUZUMAB
     Dosage: 534 MILLIGRAM, Q3W
     Route: 042
     Dates: end: 20170804
  4. TRASTUZUMAB [Suspect]
     Active Substance: TRASTUZUMAB
     Dosage: 480 MILLIGRAM, Q3W
     Route: 042
     Dates: end: 20171030
  5. TRASTUZUMAB [Suspect]
     Active Substance: TRASTUZUMAB
     Dosage: 474 MILLIGRAM, Q3W
     Route: 042
     Dates: end: 20180514
  6. TRASTUZUMAB [Suspect]
     Active Substance: TRASTUZUMAB
     Dosage: 712 MG, Q3W
     Route: 042
     Dates: start: 20170324, end: 20180723
  7. TRASTUZUMAB [Suspect]
     Active Substance: TRASTUZUMAB
     Dosage: 462 MILLIGRAM, Q3W
     Route: 042
     Dates: end: 20180608
  8. TRASTUZUMAB [Suspect]
     Active Substance: TRASTUZUMAB
     Dosage: 450 MILLIGRAM, Q3W
     Route: 042
     Dates: end: 20180904
  9. TRASTUZUMAB [Suspect]
     Active Substance: TRASTUZUMAB
     Dosage: 438 MILLIGRAM, Q3W
     Route: 042
     Dates: end: 20180926
  10. TRASTUZUMAB [Suspect]
     Active Substance: TRASTUZUMAB
     Dosage: 438 MILLIGRAM, Q3W
     Route: 042
     Dates: end: 20181017
  11. TRASTUZUMAB [Suspect]
     Active Substance: TRASTUZUMAB
     Dosage: 420 MILLIGRAM, Q3W
     Route: 042
     Dates: end: 20181128
  12. TRASTUZUMAB [Suspect]
     Active Substance: TRASTUZUMAB
     Dosage: 408 MILLIGRAM, Q3W
     Route: 042
  13. TRASTUZUMAB [Suspect]
     Active Substance: TRASTUZUMAB
     Dosage: 408 MILLIGRAM, Q3W
     Route: 042
     Dates: end: 20200424
  14. TRASTUZUMAB [Suspect]
     Active Substance: TRASTUZUMAB
     Dosage: 408 MILLIGRAM, Q3W
     Route: 042
     Dates: end: 20210424
  15. TRASTUZUMAB [Suspect]
     Active Substance: TRASTUZUMAB
     Dosage: 450 MILLIGRAM, Q3W
     Route: 042
  16. FULVESTRANT [Suspect]
     Active Substance: FULVESTRANT
     Indication: Breast cancer metastatic
     Dosage: MOST RECENT DOSE PRIOR TO EVENT: 26/DEC/2018
     Route: 030
  17. FULVESTRANT [Suspect]
     Active Substance: FULVESTRANT
     Dosage: 500 MILLIGRAM, BIWEEKLY/26-DEC-2018
     Route: 030
  18. DOCETAXEL [Suspect]
     Active Substance: DOCETAXEL
     Indication: Breast cancer metastatic
     Dosage: 137 MILLIGRAM (DATE OF MOST RECENT DOSE: 23/JUL/2018)/08-JUN-2018
     Route: 042
     Dates: end: 20180608
  19. DOCETAXEL [Suspect]
     Active Substance: DOCETAXEL
     Dosage: 134.32 MILLIGRAM, Q3W/23-JUL-2018
     Route: 042
     Dates: end: 20180904
  20. DOCETAXEL [Suspect]
     Active Substance: DOCETAXEL
     Dosage: 106.22 MILLIGRAM, Q3W/17-OCT-2018
     Route: 042
     Dates: end: 20181017
  21. DOCETAXEL [Suspect]
     Active Substance: DOCETAXEL
     Dosage: 132.78 MILLIGRAM, Q3W/26-SEP-2018
     Route: 042
     Dates: end: 20180926
  22. PERTUZUMAB [Suspect]
     Active Substance: PERTUZUMAB
     Indication: Breast cancer metastatic
     Dosage: 420 MILLIGRAM, Q3W
     Route: 042
     Dates: end: 20170619
  23. PERTUZUMAB [Suspect]
     Active Substance: PERTUZUMAB
     Dosage: 840 MG, Q3W
     Route: 042
     Dates: start: 20170324, end: 20170324
  24. PERTUZUMAB [Suspect]
     Active Substance: PERTUZUMAB
     Dosage: 420 MILLIGRAM, Q3W
     Route: 042
     Dates: end: 20171030
  25. PERTUZUMAB [Suspect]
     Active Substance: PERTUZUMAB
     Dosage: 420 MILLIGRAM, Q3W
     Route: 042
     Dates: end: 20180608
  26. PERTUZUMAB [Suspect]
     Active Substance: PERTUZUMAB
     Dosage: 420 MILLIGRAM, Q3W
     Route: 042
     Dates: end: 20180608
  27. PERTUZUMAB [Suspect]
     Active Substance: PERTUZUMAB
     Dosage: 420 MILLIGRAM, Q3W
     Route: 042
  28. ANASTROZOLE [Suspect]
     Active Substance: ANASTROZOLE
     Indication: Breast cancer metastatic
     Dosage: 1 MILLIGRAM, QD
     Route: 048
     Dates: start: 20170324
  29. ARIMIDEX [Suspect]
     Active Substance: ANASTROZOLE
     Indication: Breast cancer metastatic
     Dosage: 1 MILLIGRAM, QD/24-MAR-2017
     Route: 048
     Dates: end: 20180514
  30. ARIMIDEX [Suspect]
     Active Substance: ANASTROZOLE
     Indication: HER2 positive breast cancer
  31. HERCEPTIN [Suspect]
     Active Substance: TRASTUZUMAB
     Indication: Breast cancer
     Dosage: 712 MILLIGRAM, Q3W/24-MAR-2017
     Route: 042
  32. TAXOTERE [Suspect]
     Active Substance: DOCETAXEL
     Indication: HER2 positive breast cancer
     Dosage: 137 MILLIGRAM, Q3W, DATE OF MOST RECENT DOSE 23-JUL-2018/08-JUN-2018
     Route: 042
  33. DENOSUMAB [Suspect]
     Active Substance: DENOSUMAB
     Indication: Breast cancer metastatic
     Dosage: 120 MG, MONTHLY
     Route: 058
     Dates: start: 20170505, end: 20180329
  34. DENOSUMAB [Suspect]
     Active Substance: DENOSUMAB
     Dosage: 120 MG, MONTHLY
     Route: 058
     Dates: start: 20200310, end: 20201127
  35. DENOSUMAB [Suspect]
     Active Substance: DENOSUMAB
     Dosage: 120 MG, MONTHLY
     Route: 058
     Dates: start: 20210302
  36. DEXAMETHASONE [Concomitant]
     Active Substance: DEXAMETHASONE
     Dosage: ONGOING = NOT CHECKED/17-OCT-2018
     Route: 065
     Dates: end: 20181017
  37. DEXAMETHASONE [Concomitant]
     Active Substance: DEXAMETHASONE
     Dosage: ONGOING = NOT CHECKED/23-JUL-2018
     Route: 065
     Dates: end: 20181017
  38. VIBRAMYCIN [Concomitant]
     Active Substance: DOXYCYCLINE
     Indication: Sinusitis
     Dosage: ONGOING = NOT CHECKED/17-APR-2018
     Route: 065
     Dates: end: 20180615
  39. RANITIDINE HYDROCHLORIDE [Concomitant]
     Active Substance: RANITIDINE HYDROCHLORIDE
     Indication: Chills
     Dosage: UNK
     Route: 065
     Dates: start: 20170414, end: 20191119
  40. DIMETHINDENE [Concomitant]
     Active Substance: DIMETHINDENE
     Indication: Chills
     Dosage: UNK
     Route: 065
     Dates: start: 20140414
  41. DEXABENE [Concomitant]
     Dosage: 07-NOV-2018
     Route: 065
  42. HYDROCHLOROTHIAZIDE\RAMIPRIL [Concomitant]
     Active Substance: HYDROCHLOROTHIAZIDE\RAMIPRIL
     Dosage: UNK
     Route: 065
  43. HYDROCHLOROTHIAZIDE\RAMIPRIL [Concomitant]
     Active Substance: HYDROCHLOROTHIAZIDE\RAMIPRIL
     Dosage: UNK
     Route: 065
  44. KYTRIL [Concomitant]
     Active Substance: GRANISETRON HYDROCHLORIDE
     Dosage: ONGOING = CHECKED/08-JUN-2018
     Route: 065
  45. CORTISONE ACETATE [Concomitant]
     Active Substance: CORTISONE ACETATE
     Dosage: ONGOING = NOT CHECKED/08-JUN-2018
     Route: 065
     Dates: end: 20180608
  46. CALCIUM CARBONATE\CHOLECALCIFEROL [Concomitant]
     Active Substance: CALCIUM CARBONATE\CHOLECALCIFEROL
     Dosage: 05-MAY-2017
     Route: 065
     Dates: end: 20190615
  47. XGEVA [Concomitant]
     Active Substance: DENOSUMAB
     Dosage: 05-MAY-2017
     Route: 065
     Dates: start: 20170505, end: 20180329
  48. XGEVA [Concomitant]
     Active Substance: DENOSUMAB
     Dosage: 17-OCT-2018
     Route: 065
  49. METHYLPREDNISOLONE [Concomitant]
     Active Substance: METHYLPREDNISOLONE
     Dosage: 10-DEC-2019
     Route: 065
  50. ASPIRIN [Concomitant]
     Active Substance: ASPIRIN
     Indication: Hypertension
     Dosage: 20-NOV-2017
     Route: 065
     Dates: end: 20190615
  51. TORSEMIDE [Concomitant]
     Active Substance: TORSEMIDE
     Indication: Product used for unknown indication
     Dosage: UNK
     Route: 065
  52. FOSTER [Concomitant]
     Active Substance: BECLOMETHASONE\FORMOTEROL
     Indication: Dyspnoea
     Dosage: ONGOING=CHECKED/20-NOV-2017
     Route: 065
  53. ANDOL [Concomitant]
     Active Substance: ASPIRIN
     Indication: Product used for unknown indication
     Dosage: UNK
     Route: 065
  54. DEXAMETHASONE [Concomitant]
     Active Substance: DEXAMETHASONE
     Indication: Product used for unknown indication
     Dosage: 14-APR-2017
     Route: 065
     Dates: start: 20170414, end: 20170514
  55. BISOPROLOL FUMARATE [Concomitant]
     Active Substance: BISOPROLOL FUMARATE
     Indication: Hypertension
     Dosage: ONGOING=NOT CHECKED/13-DEC-2017
     Route: 065
     Dates: end: 20180715
  56. ACETAMINOPHEN [Concomitant]
     Active Substance: ACETAMINOPHEN
     Dosage: ONGOING = CHECKED/15-JUL-2018
     Route: 065
  57. AVELOX [Concomitant]
     Active Substance: MOXIFLOXACIN HYDROCHLORIDE
     Indication: Dyspnoea exertional
     Dosage: ONGOING= NOT CHECKED/12-JUL-2018
     Route: 065
     Dates: end: 20180722
  58. LOVENOX [Concomitant]
     Active Substance: ENOXAPARIN SODIUM
     Indication: Dyspnoea exertional
     Dosage: ONGOIN=NOT CHECKED/15-JUN-2018
     Route: 065
     Dates: end: 20180713
  59. MEROPENEM [Concomitant]
     Active Substance: MEROPENEM
     Indication: Dyspnoea exertional
     Dosage: ONGOING=NOT CHECKED/05-JUL-2018
     Route: 065
     Dates: end: 20180712
  60. POLYETHYLENE GLYCOL 3350\POTASSIUM CHLORIDE\SODIUM BICARBONATE\SODIUM [Concomitant]
     Active Substance: POLYETHYLENE GLYCOL 3350\POTASSIUM CHLORIDE\SODIUM BICARBONATE\SODIUM CHLORIDE
     Dosage: ONGOING = CHECKED/15-JUL-2018
     Route: 065
  61. METAMIZOLE [Concomitant]
     Active Substance: METAMIZOLE
     Indication: Dyspnoea exertional
     Dosage: ONGOING = CHECKED/15-JUL-2018
     Route: 065
  62. PANTOPRAZOLE SODIUM [Concomitant]
     Active Substance: PANTOPRAZOLE SODIUM
     Dosage: UNK
     Route: 065
  63. Lannapril plus [Concomitant]
     Dosage: UNK
     Route: 065
     Dates: start: 20210129
  64. FERINJECT [Concomitant]
     Active Substance: FERRIC CARBOXYMALTOSE
     Dosage: (START DATE:18-FEB-2022, STOPE DATE:18-FEB-2022)
     Route: 065

REACTIONS (17)
  - Ill-defined disorder [Recovered/Resolved]
  - Circulatory collapse [Recovered/Resolved]
  - Pain [Recovered/Resolved]
  - Dyspnoea exertional [Recovered/Resolved]
  - Polyneuropathy [Unknown]
  - Flank pain [Recovered/Resolved]
  - Renal pain [Recovered/Resolved]
  - Pain in jaw [Recovered/Resolved]
  - Diarrhoea [Recovered/Resolved]
  - Paraesthesia [Recovered/Resolved]
  - Ejection fraction decreased [Not Recovered/Not Resolved]
  - Dyspnoea [Recovered/Resolved]
  - Sinusitis [Recovered/Resolved]
  - Hypertension [Recovering/Resolving]
  - Fatigue [Recovered/Resolved]
  - Dysgeusia [Recovered/Resolved]
  - Pyrexia [Not Recovered/Not Resolved]

NARRATIVE: CASE EVENT DATE: 20170711
